FAERS Safety Report 8799272 (Version 4)
Quarter: 2013Q1

REPORT INFORMATION
  Report Type: Spontaneous
  Country: US (occurrence: US)
  Receive Date: 20120920
  Receipt Date: 20130314
  Transmission Date: 20140127
  Serious: Yes (Hospitalization, Disabling, Other)
  Sender: FDA-Public Use
  Company Number: US-009507513-1209USA004246

PATIENT
  Sex: Female

DRUGS (6)
  1. FOSAMAX [Suspect]
     Indication: OSTEOPOROSIS
     Dosage: 70 MG, UNK
     Route: 048
     Dates: start: 200004, end: 201011
  2. FOSAMAX [Suspect]
     Indication: OSTEOPENIA
     Dosage: 10 MG, UNK
     Route: 048
  3. ALENDRONATE SODIUM [Suspect]
     Indication: OSTEOPOROSIS
     Dosage: 70 MG, UNK
     Route: 048
     Dates: start: 200004, end: 201011
  4. VITAMINS (UNSPECIFIED) [Concomitant]
     Indication: ROUTINE HEALTH MAINTENANCE
     Dosage: UNK
     Dates: start: 1973
  5. CALCIUM (UNSPECIFIED) [Concomitant]
     Indication: CALCIUM DEFICIENCY
     Dosage: UNK
     Dates: start: 1994
  6. LIPITOR [Concomitant]
     Indication: BLOOD CHOLESTEROL
     Dosage: UNK
     Dates: start: 1993

REACTIONS (20)
  - Femur fracture [Not Recovered/Not Resolved]
  - Open reduction of fracture [Unknown]
  - Packed red blood cell transfusion [Unknown]
  - Femur fracture [Not Recovered/Not Resolved]
  - Open reduction of fracture [Unknown]
  - Hypokalaemia [Unknown]
  - Low turnover osteopathy [Unknown]
  - Hypothyroidism [Unknown]
  - Hypertension [Unknown]
  - Fall [Unknown]
  - Fluid retention [Unknown]
  - Osteoporosis [Unknown]
  - Depression [Unknown]
  - Osteoarthritis [Unknown]
  - Skin cyst excision [Unknown]
  - Ovarian cystectomy [Unknown]
  - Bone fragmentation [Unknown]
  - Limb operation [Unknown]
  - Fall [Unknown]
  - Contusion [Unknown]
